FAERS Safety Report 7014634-1 (Version None)
Quarter: 2010Q3

REPORT INFORMATION
  Report Type: 
  Country: None (occurrence: None)
  Receive Date: 20100927
  Receipt Date: 20100921
  Transmission Date: 20110219
  Serious: Yes (Life-Threatening, Hospitalization)
  Sender: FDA-Public Use
  Company Number: JP-ROCHE-722458

PATIENT
  Sex: Female
  Weight: 59 kg

DRUGS (15)
  1. TOCILIZUMAB [Suspect]
     Indication: PANCREATIC CARCINOMA NON-RESECTABLE
     Route: 042
     Dates: start: 20100721, end: 20100721
  2. TOCILIZUMAB [Suspect]
     Route: 042
     Dates: start: 20100811, end: 20100811
  3. GEMZAR [Suspect]
     Indication: PANCREATIC CARCINOMA NON-RESECTABLE
     Route: 042
     Dates: start: 20100721
  4. SEROTONE [Concomitant]
     Dosage: NOTE: GEMCITABINE BEFORE ADMINISTRATION
     Route: 042
     Dates: start: 20100721
  5. LIPITOR [Concomitant]
     Route: 048
     Dates: start: 20090601
  6. MAGLAX [Concomitant]
     Route: 048
     Dates: start: 20100628
  7. SENNOSIDE [Concomitant]
     Dosage: TRADE NAME: SOLDANA
     Route: 048
     Dates: start: 20100708
  8. TAKEPRON [Concomitant]
     Route: 048
     Dates: start: 20100708
  9. MUCOSTA [Concomitant]
     Route: 048
     Dates: start: 20100708
  10. CANDESARTAN CILEXETIL [Concomitant]
     Route: 048
     Dates: start: 20100708
  11. NOVAMIN (PROCHLORPERAZINE) [Concomitant]
     Dosage: GENERIC NAME: PROCHLORPERAZINE MALEATE
     Route: 048
     Dates: start: 20100722
  12. OXYCONTIN [Concomitant]
     Dosage: GENERIC NAME: OXYCODONE HYDROCHLORIDE
     Route: 048
     Dates: start: 20100628, end: 20100811
  13. OXYCONTIN [Concomitant]
     Route: 048
     Dates: start: 20100812
  14. OXINORM [Concomitant]
     Dosage: A DOSE
     Route: 048
     Dates: start: 20100628
  15. OMNIPAQUE 140 [Concomitant]
     Dosage: BEFORE IT TAKES PICTURE OF CT
     Route: 042
     Dates: start: 20100630

REACTIONS (2)
  - GASTROINTESTINAL PERFORATION [None]
  - PERITONITIS [None]
